FAERS Safety Report 7177875-9 (Version None)
Quarter: 2010Q4

REPORT INFORMATION
  Report Type: 
  Country: None (occurrence: None)
  Receive Date: 20101220
  Receipt Date: 20100917
  Transmission Date: 20110411
  Serious: Yes (Hospitalization, Other)
  Sender: FDA-Public Use
  Company Number: US-BAYER-201015395NA

PATIENT
  Sex: Female
  Weight: 59 kg

DRUGS (13)
  1. YAZ [Suspect]
  2. YASMIN [Suspect]
     Dates: start: 20040101, end: 20050501
  3. OCELLA [Suspect]
  4. SPIRONOLACTONE [Concomitant]
     Indication: HIRSUTISM
  5. ALLEGRA [Concomitant]
  6. MINOCYCLINE [Concomitant]
  7. BENADRYL [Concomitant]
  8. SOLU-MEDROL [Concomitant]
  9. DOXYCYCLINE [Concomitant]
  10. DARVOCET [Concomitant]
  11. ZOLOFT [Concomitant]
     Route: 048
  12. ALPRAZOLAM [Concomitant]
  13. ASPIRIN [Concomitant]
     Route: 065

REACTIONS (16)
  - ANXIETY [None]
  - ARTHRALGIA [None]
  - ARTHRITIS [None]
  - DEEP VEIN THROMBOSIS [None]
  - DEPRESSION [None]
  - GASTRITIS [None]
  - HYPERSENSITIVITY [None]
  - MYALGIA [None]
  - OROPHARYNGEAL PAIN [None]
  - PAIN [None]
  - PARVOVIRUS INFECTION [None]
  - PULMONARY EMBOLISM [None]
  - RASH GENERALISED [None]
  - URTICARIA [None]
  - VARICOSE VEIN [None]
  - VASCULITIS [None]
